FAERS Safety Report 20314609 (Version 1)
Quarter: 2022Q1

REPORT INFORMATION
  Report Type: Spontaneous
  Country: US (occurrence: None)
  Receive Date: 20220108
  Receipt Date: 20220108
  Transmission Date: 20220423
  Serious: No
  Sender: FDA-Public Use
  Company Number: None

PATIENT
  Age: 72 Year
  Weight: 81.65 kg

DRUGS (16)
  1. BRAFTOVI [Suspect]
     Active Substance: ENCORAFENIB
     Indication: Plasma cell myeloma
     Dosage: FREQUENCY : DAILY;?
     Route: 048
     Dates: start: 20210204
  2. MEKTOVI [Suspect]
     Active Substance: BINIMETINIB
     Indication: Plasma cell myeloma
     Dosage: FREQUENCY : TWICE A DAY;?
     Route: 048
     Dates: start: 20210204
  3. VALACYCLOVIR [Concomitant]
  4. ATIVAN [Concomitant]
  5. JARDIANCE [Concomitant]
  6. HALOBETASOL [Concomitant]
  7. KETOCONAZOLE [Concomitant]
  8. HYDROCHLOROTHIAZIDE [Concomitant]
  9. LOSARTAN [Concomitant]
  10. TRIAMCINOLONE [Concomitant]
  11. FLOMAX [Concomitant]
  12. PROPRANOLOL [Concomitant]
  13. KEPPRA [Concomitant]
  14. OMEPRAZOLE [Concomitant]
  15. DEXAMETHASONE [Concomitant]
     Active Substance: DEXAMETHASONE
  16. ZOLPIDEM [Concomitant]

REACTIONS (1)
  - Hospitalisation [None]
